FAERS Safety Report 25029484 (Version 1)
Quarter: 2025Q1

REPORT INFORMATION
  Report Type: Report from Study
  Country: BR (occurrence: BR)
  Receive Date: 20250303
  Receipt Date: 20250303
  Transmission Date: 20250409
  Serious: Yes (Hospitalization, Other)
  Sender: JOHNSON AND JOHNSON
  Company Number: BR-JNJFOC-20250228219

PATIENT
  Age: 69 Year
  Sex: Male
  Weight: 82 kg

DRUGS (3)
  1. SIMPONI [Suspect]
     Active Substance: GOLIMUMAB
     Indication: Ankylosing spondylitis
     Route: 058
  2. SIMPONI [Suspect]
     Active Substance: GOLIMUMAB
     Route: 058
  3. AMOXICILINA + ACIDO CLAVULANICO BASI [AMOXICILLIN SODIUM;CLAVULANATE P [Concomitant]

REACTIONS (5)
  - Hypokinesia [Not Recovered/Not Resolved]
  - Ankylosing spondylitis [Unknown]
  - Erysipelas [Unknown]
  - Bedridden [Unknown]
  - Abdominal pain [Unknown]

NARRATIVE: CASE EVENT DATE: 20250204
